FAERS Safety Report 7883273-2 (Version None)
Quarter: 2011Q4

REPORT INFORMATION
  Report Type: 
  Country: None (occurrence: None)
  Receive Date: 20111102
  Receipt Date: 20111021
  Transmission Date: 20120403
  Serious: Yes (Other)
  Sender: FDA-Public Use
  Company Number: TR-JNJFOC-20111010788

PATIENT
  Sex: Female

DRUGS (1)
  1. REMICADE [Suspect]
     Indication: PSORIATIC ARTHROPATHY
     Route: 042
     Dates: start: 20110701, end: 20111001

REACTIONS (4)
  - BURNING SENSATION [None]
  - THROAT TIGHTNESS [None]
  - OEDEMA PERIPHERAL [None]
  - DYSPNOEA [None]
